FAERS Safety Report 20774800 (Version 1)
Quarter: 2022Q2

REPORT INFORMATION
  Report Type: Spontaneous
  Country: US (occurrence: None)
  Receive Date: 20220501
  Receipt Date: 20220501
  Transmission Date: 20220721
  Serious: Yes (Hospitalization)
  Sender: FDA-Public Use
  Company Number: None

PATIENT
  Age: 76 Year
  Sex: Female

DRUGS (13)
  1. HYDRALAZINE [Suspect]
     Active Substance: HYDRALAZINE HYDROCHLORIDE
     Indication: Blood pressure systolic increased
     Dosage: FREQUENCY : AS NEEDED;?
     Route: 042
     Dates: start: 20211102, end: 20211102
  2. Clonidine 0.1mg tablet [Concomitant]
  3. Diphenhydramine 25mg injection [Concomitant]
  4. Famotidine 20mg injection [Concomitant]
  5. Fentanyl 100mcg injection [Concomitant]
  6. Glycopyrrolate 0.2mg injection [Concomitant]
  7. Haloperidol injection 5mg [Concomitant]
  8. Ketamine 50mg/5mL syringe [Concomitant]
  9. Labetalol 10mg injection [Concomitant]
  10. Levetiracetam 1000 IVPB [Concomitant]
  11. Lidocaine PF 4% 200mg injection [Concomitant]
  12. Methylprednisolone 125mg injection [Concomitant]
  13. QUETIAPINE [Concomitant]
     Active Substance: QUETIAPINE

REACTIONS (2)
  - Hypertensive encephalopathy [None]
  - Swollen tongue [None]

NARRATIVE: CASE EVENT DATE: 20211102
